FAERS Safety Report 4714613-0 (Version None)
Quarter: 2005Q3

REPORT INFORMATION
  Report Type: 
  Country: None (occurrence: None)
  Receive Date: 20050713
  Receipt Date: 20050713
  Transmission Date: 20060218
  Serious: Yes (Hospitalization, Other)
  Sender: FDA-Public Use
  Company Number: None

PATIENT
  Age: 28 Year
  Sex: Male

DRUGS (1)
  1. IRINOTECAN [Suspect]

REACTIONS (5)
  - COUGH [None]
  - HYPERHIDROSIS [None]
  - HYPOXIA [None]
  - TACHYCARDIA [None]
  - TACHYPNOEA [None]
